FAERS Safety Report 15180233 (Version 1)
Quarter: 2018Q3

REPORT INFORMATION
  Report Type: Spontaneous
  Country: US (occurrence: US)
  Receive Date: 20180723
  Receipt Date: 20180723
  Transmission Date: 20181010
  Serious: Yes (Hospitalization)
  Sender: FDA-Public Use
  Company Number: US-CPL-000525

PATIENT
  Age: 74 Year
  Sex: Male

DRUGS (7)
  1. ATORVASTATIN [Concomitant]
     Active Substance: ATORVASTATIN
  2. CLOPIDOGREL [Concomitant]
     Active Substance: CLOPIDOGREL BISULFATE
  3. HYDRALAZINE/HYDRALAZINE HYDROCHLORIDE [Suspect]
     Active Substance: HYDRALAZINE HYDROCHLORIDE
     Indication: HYPERTENSION
     Dosage: STARTED 2 MONTHS PRIOR TO ADMISSION ON 18?DEC?2017
     Dates: end: 20171228
  4. SPIRONOLACTONE. [Concomitant]
     Active Substance: SPIRONOLACTONE
  5. AMIODARONE [Concomitant]
     Active Substance: AMIODARONE
  6. FUROSEMIDE. [Concomitant]
     Active Substance: FUROSEMIDE
  7. PROPAFENONE. [Concomitant]
     Active Substance: PROPAFENONE

REACTIONS (16)
  - Aspartate aminotransferase increased [None]
  - Hepatomegaly [None]
  - Periportal oedema [None]
  - Gallbladder enlargement [None]
  - Nausea [None]
  - Asthenia [None]
  - Transaminases increased [Recovering/Resolving]
  - Cardiac murmur [None]
  - Pancreatic cyst [None]
  - Jaundice cholestatic [None]
  - Cholestatic liver injury [Recovering/Resolving]
  - Dizziness [None]
  - Blood bilirubin increased [None]
  - Abdominal discomfort [None]
  - Oedema peripheral [None]
  - Blood alkaline phosphatase increased [None]

NARRATIVE: CASE EVENT DATE: 2017
